FAERS Safety Report 4548392-7 (Version None)
Quarter: 2005Q1

REPORT INFORMATION
  Report Type: 
  Country: None (occurrence: None)
  Receive Date: 20050106
  Receipt Date: 20041220
  Transmission Date: 20050727
  Serious: Yes (Hospitalization)
  Sender: FDA-Public Use
  Company Number: USA041286626

PATIENT
  Age: 81 Year
  Sex: Female

DRUGS (3)
  1. EVISTA [Suspect]
     Dates: start: 19970101
  2. FORTEO [Suspect]
     Dates: start: 20041124
  3. CALCIUM GLUCONATE [Concomitant]

REACTIONS (4)
  - ASTHENIA [None]
  - CHEST PAIN [None]
  - HEART RATE INCREASED [None]
  - PHARMACEUTICAL PRODUCT COMPLAINT [None]
